FAERS Safety Report 19277739 (Version 2)
Quarter: 2021Q2

REPORT INFORMATION
  Report Type: Report from Study
  Country: SE (occurrence: SE)
  Receive Date: 20210520
  Receipt Date: 20210521
  Transmission Date: 20210717
  Serious: Yes (Hospitalization)
  Sender: FDA-Public Use
  Company Number: SE-ROCHE-2768177

PATIENT
  Age: 75 Year
  Sex: Female
  Weight: 70 kg

DRUGS (16)
  1. PACLITAXEL. [Suspect]
     Active Substance: PACLITAXEL
     Indication: CERVIX CARCINOMA
     Dosage: DATE OF MOST RECENT DOSE OF PACLITAXEL PRIOR TO ONSET OF SAE: 28/JAN/2021 (237 MG)
     Route: 042
     Dates: start: 20201126
  2. ESTRIOL [Concomitant]
     Active Substance: ESTRIOL
     Dosage: DOSE: 1 MG/G
     Route: 067
     Dates: start: 20200402
  3. CISPLATIN. [Suspect]
     Active Substance: CISPLATIN
     Indication: CERVIX CARCINOMA
     Dosage: DATE OF MOST RECENT DOSE OF CISPLATIN PRIOR TO ONSET OF SAE: 28/JAN/2021 (88.5 MG)
     Route: 042
     Dates: start: 20201126
  4. XYLOPROCT (SWEDEN) [Concomitant]
     Route: 061
     Dates: start: 20210105
  5. METOKLOPRAMID [Concomitant]
     Route: 048
     Dates: start: 20201126
  6. DESLORATADINE. [Concomitant]
     Active Substance: DESLORATADINE
     Route: 048
     Dates: start: 20201126
  7. BEVACIZUMAB. [Suspect]
     Active Substance: BEVACIZUMAB
     Indication: CERVIX CARCINOMA
     Dosage: DATE OF MOST RECENT DOSE OF BEVACIZUMAB PRIOR TO ONSET OF SAE: 27/JAN/2021 (1050 MG)
     Route: 042
     Dates: start: 20201125
  8. BETAMETHASON [Concomitant]
     Active Substance: BETAMETHASONE
     Route: 048
     Dates: start: 20201125
  9. XYLOPROCT (SWEDEN) [Concomitant]
     Indication: HAEMORRHOIDS
     Route: 054
     Dates: start: 20210105
  10. DALTEPARIN [Suspect]
     Active Substance: DALTEPARIN
     Indication: PRODUCT USED FOR UNKNOWN INDICATION
     Dosage: 5000 IE
     Route: 058
     Dates: start: 20210110
  11. INOLAXOL [Concomitant]
     Active Substance: HERBALS\KARAYA GUM
     Indication: CONSTIPATION
     Dosage: DOSE: 5 GR
     Route: 048
     Dates: start: 20200326
  12. PARACETAMOL [Concomitant]
     Active Substance: ACETAMINOPHEN
     Indication: PROCTALGIA
     Dosage: DOSE: 1 GR
     Route: 048
     Dates: start: 20200814
  13. MAGNESIUM HYDROXIDE. [Concomitant]
     Active Substance: MAGNESIUM HYDROXIDE
     Indication: HYPOMAGNESAEMIA
     Route: 048
     Dates: start: 20210126
  14. XYLOCAIN [Concomitant]
     Indication: PROCTALGIA
     Dosage: 5000 IE
     Route: 061
     Dates: start: 20210323
  15. ATEZOLIZUMAB. [Suspect]
     Active Substance: ATEZOLIZUMAB
     Indication: CERVIX CARCINOMA
     Dosage: DATE OF MOST RECENT DOSE OF ATEZOLIZUMAB PRIOR TO ONSET OF SAE: 27/JAN/2021 (1200 MG)
     Route: 042
     Dates: start: 20201125
  16. AKYNZEO [Concomitant]
     Active Substance: NETUPITANT\PALONOSETRON HYDROCHLORIDE
     Route: 048
     Dates: start: 20201126

REACTIONS (2)
  - Female genital tract fistula [Recovered/Resolved]
  - Rectal ulcer [Recovered/Resolved]

NARRATIVE: CASE EVENT DATE: 20210209
